FAERS Safety Report 4302646-8 (Version None)
Quarter: 2004Q1

REPORT INFORMATION
  Report Type: 
  Country: None (occurrence: None)
  Receive Date: 20040220
  Receipt Date: 20040210
  Transmission Date: 20041129
  Serious: Yes (Hospitalization, Other)
  Sender: FDA-Public Use
  Company Number: 2004008949

PATIENT
  Sex: Female

DRUGS (5)
  1. NEURONTIN [Suspect]
     Indication: PSYCHOTIC DISORDER
     Dosage: 1200 MG (QID), ORAL
     Route: 048
     Dates: end: 20040206
  2. BUPROPION HYDROCHLORIDE [Concomitant]
  3. DIPHENHYDRAMINE HYDROCHLORIDE (DIPHEHYDRAMINE HYDROCHLORIDE) [Concomitant]
  4. VALPROATE SODIUM [Concomitant]
  5. VALPROATE SODIUM [Concomitant]

REACTIONS (16)
  - ABNORMAL DREAMS [None]
  - AGGRESSION [None]
  - ANOREXIA [None]
  - CHAPPED LIPS [None]
  - COUGH [None]
  - DISEASE RECURRENCE [None]
  - DIZZINESS [None]
  - DRUG EFFECT DECREASED [None]
  - DRY MOUTH [None]
  - EATING DISORDER [None]
  - HOMICIDAL IDEATION [None]
  - INSOMNIA [None]
  - MYOCARDIAL INFARCTION [None]
  - NIGHTMARE [None]
  - TREMOR [None]
  - WEIGHT INCREASED [None]
